FAERS Safety Report 9491174 (Version 2)
Quarter: 2013Q3

REPORT INFORMATION
  Report Type: Spontaneous
  Country: US (occurrence: None)
  Receive Date: 20130827
  Receipt Date: 20130910
  Transmission Date: 20140515
  Serious: Yes (Other)
  Sender: FDA-Public Use
  Company Number: AUR-APL-2013-07048

PATIENT
  Age: 65 Year
  Sex: Male
  Weight: 88.43 kg

DRUGS (6)
  1. CLOPIDOGREL [Suspect]
     Indication: ANTICOAGULANT THERAPY
     Dosage: 75MG, 1D)
     Dates: start: 2012
  2. LIPITOR [Suspect]
     Indication: PRODUCT USED FOR UNKNOWN INDICATION
     Route: 048
     Dates: start: 201105
  3. ATORVASTATIN [Suspect]
     Indication: PRODUCT USED FOR UNKNOWN INDICATION
     Dates: end: 2012
  4. PLAVIX [Suspect]
     Indication: ANTICOAGULANT THERAPY
     Dates: start: 201105
  5. LISINOPRIL [Concomitant]
  6. METOPROLOL [Concomitant]

REACTIONS (12)
  - Rash macular [None]
  - Rash [None]
  - Blister [None]
  - Urticaria [None]
  - Pain [None]
  - Nausea [None]
  - Swelling [None]
  - Eczema [None]
  - Hernia [None]
  - Joint injury [None]
  - Unevaluable event [None]
  - Pruritus [None]
